FAERS Safety Report 17530994 (Version 1)
Quarter: 2020Q1

REPORT INFORMATION
  Report Type: Other
  Country: US (occurrence: US)
  Receive Date: 20200312
  Receipt Date: 20200312
  Transmission Date: 20200409
  Serious: Yes (Hospitalization)
  Sender: FDA-Public Use
  Company Number: US-ORCHID HEALTHCARE-2081533

PATIENT
  Age: 72 Year
  Sex: Male

DRUGS (4)
  1. HYDROCHLOROTHIAZIDE. [Suspect]
     Active Substance: HYDROCHLOROTHIAZIDE
     Route: 065
  2. HYDRALAZINE [Suspect]
     Active Substance: HYDRALAZINE HYDROCHLORIDE
     Route: 065
  3. AMLODIPINE BESYLATE. [Suspect]
     Active Substance: AMLODIPINE BESYLATE
     Indication: HYPERTENSION
     Route: 065
  4. FUROSEMIDE. [Suspect]
     Active Substance: FUROSEMIDE
     Route: 065

REACTIONS (1)
  - Gastrointestinal tract mucosal pigmentation [Recovered/Resolved]
